FAERS Safety Report 11088282 (Version 2)
Quarter: 2015Q2

REPORT INFORMATION
  Report Type: Spontaneous
  Country: IT (occurrence: None)
  Receive Date: 20150430
  Receipt Date: 20150610
  Transmission Date: 20150821
  Serious: Yes (Life-Threatening)
  Sender: FDA-Public Use
  Company Number: KAD201504-000968

PATIENT
  Age: 70 Year
  Sex: Female
  Weight: 65 kg

DRUGS (3)
  1. RIBAVIRIN. [Suspect]
     Active Substance: RIBAVIRIN
     Indication: CHRONIC HEPATITIS C
     Route: 048
  2. SOFOSBUVIR [Suspect]
     Active Substance: SOFOSBUVIR
     Indication: CHRONIC HEPATITIS C
     Route: 048
  3. RAMIPRIL IDROCLOROTIAZIDE (SALUTEC) (HYDROCHLOROTHIAZIDE, RAMIPRIL) [Concomitant]

REACTIONS (4)
  - Pneumonia bacterial [None]
  - Acute kidney injury [None]
  - Asthmatic crisis [None]
  - Infectious pleural effusion [None]

NARRATIVE: CASE EVENT DATE: 20150314
